FAERS Safety Report 11577709 (Version 2)
Quarter: 2015Q4

REPORT INFORMATION
  Report Type: Spontaneous
  Country: CA (occurrence: CA)
  Receive Date: 20150930
  Receipt Date: 20151001
  Transmission Date: 20160304
  Serious: Yes (Hospitalization, Other)
  Sender: FDA-Public Use
  Company Number: CA-JNJFOC-20150921440

PATIENT
  Sex: Female

DRUGS (1)
  1. RISPERIDONE. [Suspect]
     Active Substance: RISPERIDONE
     Indication: PRODUCT USED FOR UNKNOWN INDICATION
     Route: 048

REACTIONS (5)
  - Preterm premature rupture of membranes [Unknown]
  - Premature delivery [Recovered/Resolved]
  - Weight increased [Unknown]
  - Exposure during pregnancy [Recovered/Resolved]
  - Pre-eclampsia [Unknown]
